FAERS Safety Report 23112926 (Version 1)
Quarter: 2023Q4

REPORT INFORMATION
  Report Type: Spontaneous
  Country: EG (occurrence: EG)
  Receive Date: 20231027
  Receipt Date: 20231027
  Transmission Date: 20240109
  Serious: Yes (Hospitalization, Other)
  Sender: FDA-Public Use
  Company Number: None

PATIENT
  Sex: Female

DRUGS (6)
  1. INSULIN HUMAN [Suspect]
     Active Substance: INSULIN HUMAN
     Indication: Product used for unknown indication
     Dosage: 100 IU, QD ( 60 UNIT AT THE MORNING AND 40 UNIT AT THE EVENING)
     Route: 064
  2. ATENOLOL [Suspect]
     Active Substance: ATENOLOL
     Indication: Product used for unknown indication
     Dosage: 100 MG, QD
     Route: 064
  3. VILDAGLIPTIN [Suspect]
     Active Substance: VILDAGLIPTIN
     Indication: Product used for unknown indication
     Dosage: 1000 MG, QD
     Route: 064
  4. ACETYLSALICYLIC ACID COATED [Suspect]
     Active Substance: ASPIRIN
     Indication: Product used for unknown indication
     Dosage: 75 MG, QD
     Route: 064
  5. PENICILLIN [Suspect]
     Active Substance: PENICILLIN
     Indication: Product used for unknown indication
     Dosage: EVERY TWO WEEKS
     Route: 064
  6. NEUROVIT [CYANOCOBALAMIN;IBUPROFEN;PYRIDOXINE HYDROCHLORIDE;THIAMINE H [Concomitant]
     Indication: Product used for unknown indication
     Dosage: ONCE DAILY
     Route: 064

REACTIONS (2)
  - Intensive care [Unknown]
  - Foetal exposure during pregnancy [Recovered/Resolved]

NARRATIVE: CASE EVENT DATE: 20230914
